FAERS Safety Report 4757582-X (Version None)
Quarter: 2005Q3

REPORT INFORMATION
  Report Type: 
  Country: None (occurrence: None)
  Receive Date: 20050830
  Receipt Date: 20050816
  Transmission Date: 20060218
  Serious: Yes (Other)
  Sender: FDA-Public Use
  Company Number: 12159

PATIENT
  Age: 5 Year
  Sex: Female

DRUGS (2)
  1. VINBLASTINE [Suspect]
     Indication: MALIGNANT HISTIOCYTOSIS
     Dates: end: 19940101
  2. ETOPOSIDE [Suspect]
     Indication: MALIGNANT HISTIOCYTOSIS
     Dates: end: 19940101

REACTIONS (2)
  - DEAFNESS BILATERAL [None]
  - DEAFNESS NEUROSENSORY [None]
